FAERS Safety Report 8029829-8 (Version None)
Quarter: 2011Q4

REPORT INFORMATION
  Report Type: 
  Country: None (occurrence: None)
  Receive Date: 20111130
  Receipt Date: 20110620
  Transmission Date: 20120403
  Serious: Yes (Other)
  Sender: FDA-Public Use
  Company Number: US200910005558

PATIENT
  Sex: Male
  Weight: 113.4 kg

DRUGS (13)
  1. METOPROLOL TARTRATE [Concomitant]
  2. ENALAPRIL MALEATE [Concomitant]
  3. CATAPRES [Concomitant]
  4. PRIMIDONE [Concomitant]
  5. BYETTA [Suspect]
  6. TOPROL-XL [Concomitant]
  7. ALDACTONE [Concomitant]
  8. CATAPRES [Concomitant]
  9. METFORMIN HCL [Concomitant]
  10. MINOXIDIL [Concomitant]
  11. CRESTOR [Concomitant]
  12. EXENATIDE, DISPOSABLE DEVICE (EXENATIDE PEN ) PEN,DISPOSABLE [Concomitant]
  13. TRIAMTERENE (TRIAMTERENE) [Concomitant]

REACTIONS (2)
  - DIARRHOEA [None]
  - PANCREATITIS ACUTE [None]
